FAERS Safety Report 6305705-3 (Version None)
Quarter: 2009Q3

REPORT INFORMATION
  Report Type: 
  Country: None (occurrence: None)
  Receive Date: 20090807
  Receipt Date: 20090731
  Transmission Date: 20100115
  Serious: Yes (Other)
  Sender: FDA-Public Use
  Company Number: TPA2009A00665

PATIENT
  Age: 53 Year
  Sex: Male
  Weight: 94.3482 kg

DRUGS (7)
  1. ACTOS [Suspect]
     Indication: TYPE 2 DIABETES MELLITUS
     Dosage: 30 MG, 1 IN 1 D, PER ORAL
     Route: 048
     Dates: start: 20071201, end: 20090301
  2. XALATAN [Concomitant]
  3. GLYBURIDE [Concomitant]
  4. LANTUS [Concomitant]
  5. TAGAMET [Concomitant]
  6. IBUPROFEN [Concomitant]
  7. ASPIRIN [Concomitant]

REACTIONS (5)
  - HELICOBACTER PYLORI IDENTIFICATION TEST POSITIVE [None]
  - HEPATIC CANCER METASTATIC [None]
  - HEPATIC STEATOSIS [None]
  - PANCREATIC CARCINOMA [None]
  - PANCREATITIS ACUTE [None]
